FAERS Safety Report 17230018 (Version 1)
Quarter: 2020Q1

REPORT INFORMATION
  Report Type: Spontaneous
  Country: US (occurrence: US)
  Receive Date: 20200103
  Receipt Date: 20200103
  Transmission Date: 20200409
  Serious: Yes (Other)
  Sender: FDA-Public Use
  Company Number: US-BIOVITRUM-2019US4008

PATIENT
  Age: 56 Year
  Sex: Female

DRUGS (1)
  1. KINERET [Suspect]
     Active Substance: ANAKINRA
     Indication: RHEUMATOID ARTHRITIS
     Dates: start: 201907, end: 201909

REACTIONS (6)
  - Vasculitic ulcer [Unknown]
  - Intestinal perforation [Unknown]
  - Infected skin ulcer [Unknown]
  - Skin laceration [Unknown]
  - Wound [Unknown]
  - Constipation [Unknown]

NARRATIVE: CASE EVENT DATE: 201909
